FAERS Safety Report 6882346-0 (Version None)
Quarter: 2010Q3

REPORT INFORMATION
  Report Type: 
  Country: None (occurrence: None)
  Receive Date: 20100729
  Receipt Date: 20100315
  Transmission Date: 20110219
  Serious: No
  Sender: FDA-Public Use
  Company Number: US-MYLANLABS-2010S1004546

PATIENT
  Sex: Female

DRUGS (4)
  1. LEVOTHYROXINE SODIUM [Suspect]
     Indication: HYPOTHYROIDISM
     Dates: start: 20080101, end: 20090101
  2. LEVOTHYROXINE SODIUM [Suspect]
     Route: 048
     Dates: start: 20090101, end: 20100101
  3. LEVOTHYROXINE SODIUM [Suspect]
     Route: 048
     Dates: start: 20100101
  4. ATENOLOL [Concomitant]

REACTIONS (1)
  - FEELING ABNORMAL [None]
